FAERS Safety Report 14329491 (Version 2)
Quarter: 2017Q4

REPORT INFORMATION
  Report Type: Report from Study
  Country: US (occurrence: US)
  Receive Date: 20171227
  Receipt Date: 20171228
  Transmission Date: 20180321
  Serious: Yes (Hospitalization, Other)
  Sender: FDA-Public Use
  Company Number: US-R-PHARM US LLC-2017RPM00098

PATIENT
  Age: 64 Year
  Sex: Female
  Weight: 113.4 kg

DRUGS (1)
  1. IXABEPILONE [Suspect]
     Active Substance: IXABEPILONE
     Indication: OVARIAN CANCER
     Dosage: 24 MG, ON DAYS 1, 8, 15 EVERY 28 DAYS
     Route: 042
     Dates: start: 20171006, end: 20171201

REACTIONS (4)
  - Urine output decreased [Unknown]
  - Anaemia [Unknown]
  - Pleural effusion [Unknown]
  - Blood creatinine increased [Unknown]

NARRATIVE: CASE EVENT DATE: 20171130
